FAERS Safety Report 6266005-3 (Version None)
Quarter: 2009Q3

REPORT INFORMATION
  Report Type: 
  Country: None (occurrence: None)
  Receive Date: 20090709
  Receipt Date: 20090709
  Transmission Date: 20100115
  Serious: Yes (Other)
  Sender: FDA-Public Use
  Company Number: None

PATIENT
  Age: 53 Year
  Sex: Female
  Weight: 75.2971 kg

DRUGS (1)
  1. VIVITROL [Suspect]
     Indication: ALCOHOLISM
     Dosage: 380MG EXTENDED RELEASE ONE PER MONTH IM, TWO INJECTIONS
     Route: 030
     Dates: start: 20090604, end: 20090706

REACTIONS (3)
  - INDURATION [None]
  - PAIN [None]
  - PRURITUS [None]
